FAERS Safety Report 13798324 (Version 1)
Quarter: 2017Q3

REPORT INFORMATION
  Report Type: Spontaneous
  Country: SE (occurrence: SE)
  Receive Date: 20170727
  Receipt Date: 20170727
  Transmission Date: 20171127
  Serious: Yes (Other)
  Sender: FDA-Public Use
  Company Number: PHHY2017SE104550

PATIENT
  Age: 62 Year
  Sex: Female

DRUGS (1)
  1. COSENTYX [Suspect]
     Active Substance: SECUKINUMAB
     Indication: PRODUCT USED FOR UNKNOWN INDICATION
     Dosage: UNK
     Route: 065

REACTIONS (13)
  - Pruritus generalised [Unknown]
  - Tongue blistering [Unknown]
  - Oral mucosal blistering [Recovering/Resolving]
  - Rash [Unknown]
  - Ageusia [Unknown]
  - Oral pain [Unknown]
  - Dyspnoea at rest [Unknown]
  - Dyspnoea [Unknown]
  - Stomatitis [Recovering/Resolving]
  - Weight decreased [Unknown]
  - Skin exfoliation [Recovering/Resolving]
  - Dry mouth [Unknown]
  - Pruritus genital [Unknown]

NARRATIVE: CASE EVENT DATE: 20170621
